FAERS Safety Report 16873058 (Version 3)
Quarter: 2019Q4

REPORT INFORMATION
  Report Type: Spontaneous
  Country: JP (occurrence: JP)
  Receive Date: 20191001
  Receipt Date: 20191107
  Transmission Date: 20200122
  Serious: Yes (Other)
  Sender: FDA-Public Use
  Company Number: JP-ELI_LILLY_AND_COMPANY-JP201909012323

PATIENT
  Age: 63 Year
  Sex: Male

DRUGS (3)
  1. ERBITUX [Suspect]
     Active Substance: CETUXIMAB
     Indication: LIP NEOPLASM MALIGNANT STAGE UNSPECIFIED
     Dosage: UNK UNK, UNKNOWN
     Route: 041
     Dates: start: 20190903, end: 20190910
  2. FLUOROURACIL. [Suspect]
     Active Substance: FLUOROURACIL
     Indication: LIP NEOPLASM MALIGNANT STAGE UNSPECIFIED
     Dosage: UNK UNK, UNKNOWN
     Route: 042
  3. CDDP [Concomitant]
     Active Substance: CISPLATIN
     Indication: LIP NEOPLASM MALIGNANT STAGE UNSPECIFIED
     Dosage: 70 MG/M2
     Route: 042

REACTIONS (1)
  - Platelet count decreased [Recovering/Resolving]

NARRATIVE: CASE EVENT DATE: 201909
